FAERS Safety Report 5999072-2 (Version None)
Quarter: 2008Q4

REPORT INFORMATION
  Report Type: 
  Country: None (occurrence: None)
  Receive Date: 20081215
  Receipt Date: 20081208
  Transmission Date: 20090506
  Serious: Yes (Other)
  Sender: FDA-Public Use
  Company Number: US-RANBAXY-2008US-19804

PATIENT

DRUGS (2)
  1. ISOTRETINOIN [Suspect]
     Indication: DRUG USE FOR UNKNOWN INDICATION
     Dosage: 20 MG, QD
     Route: 048
     Dates: start: 20081110, end: 20081130
  2. ETONOGESTREL ETHINYL ESTRADIOL VAGINAL RING [Concomitant]
     Indication: CONTRACEPTION
     Route: 067

REACTIONS (2)
  - ABDOMINAL PAIN UPPER [None]
  - PREGNANCY [None]
